FAERS Safety Report 6898481-7 (Version None)
Quarter: 2010Q3

REPORT INFORMATION
  Report Type: 
  Country: None (occurrence: None)
  Receive Date: 20100802
  Receipt Date: 20071022
  Transmission Date: 20110219
  Serious: Yes (Other)
  Sender: FDA-Public Use
  Company Number: US-PFIZER INC-2007081517

PATIENT
  Sex: Female
  Weight: 79.5 kg

DRUGS (5)
  1. LYRICA [Suspect]
     Indication: NEURALGIA
     Dates: start: 20070829, end: 20070901
  2. OXYCONTIN [Concomitant]
  3. NORGESIC FORTE [Concomitant]
  4. ANTIHYPERTENSIVES [Concomitant]
  5. VALIUM [Concomitant]

REACTIONS (6)
  - EYE PAIN [None]
  - EYE SWELLING [None]
  - OCULAR HYPERAEMIA [None]
  - OEDEMA PERIPHERAL [None]
  - RETINAL VEIN OCCLUSION [None]
  - VISION BLURRED [None]
